FAERS Safety Report 6445644-0 (Version None)
Quarter: 2009Q4

REPORT INFORMATION
  Report Type: 
  Country: None (occurrence: None)
  Receive Date: 20091118
  Receipt Date: 20091118
  Transmission Date: 20100525
  Serious: Yes (Other)
  Sender: FDA-Public Use
  Company Number: None

PATIENT
  Age: 39 Year
  Sex: Male
  Weight: 106.5953 kg

DRUGS (1)
  1. ZITHROMAX [Suspect]
     Indication: FRONTAL SINUS OPERATION
     Dosage: 250 6 DAYS ONCE
     Dates: start: 20080611, end: 20080616

REACTIONS (6)
  - BALANCE DISORDER [None]
  - GASTRIC DISORDER [None]
  - HEADACHE [None]
  - INFLAMMATION [None]
  - PARANASAL SINUS HYPERSECRETION [None]
  - SINUS DISORDER [None]
